FAERS Safety Report 24669838 (Version 2)
Quarter: 2024Q4

REPORT INFORMATION
  Report Type: Spontaneous
  Country: CZ (occurrence: CZ)
  Receive Date: 20241127
  Receipt Date: 20241202
  Transmission Date: 20250115
  Serious: Yes (Other)
  Sender: PFIZER
  Company Number: CZ-PFIZER INC-202400308673

PATIENT
  Age: 56 Year
  Sex: Female

DRUGS (5)
  1. MYLOTARG [Suspect]
     Active Substance: GEMTUZUMAB OZOGAMICIN
     Indication: Acute myeloid leukaemia
     Dosage: UNK, 2X CONSOLIDATION IN REGIMEN; D1
     Dates: start: 20231012
  2. DAUNORUBICIN [Suspect]
     Active Substance: DAUNORUBICIN
     Indication: Acute myeloid leukaemia
     Dosage: 60 (AS REPORTED),  2X CONSOLIDATION IN REGIMEN; D1
     Dates: start: 20231012
  3. CYTARABINE [Suspect]
     Active Substance: CYTARABINE
     Indication: Acute myeloid leukaemia
     Dosage: 1000 (AS REPORTED), 2X CONSOLIDATION IN REGIMEN; D1-4
     Dates: start: 20231012
  4. MIDOSTAURIN [Suspect]
     Active Substance: MIDOSTAURIN
     Indication: Acute myeloid leukaemia
     Dosage: UNK, 2X CONSOLIDATION IN REGIMEN; D8-21
     Dates: start: 20231019
  5. ONUREG [Concomitant]
     Active Substance: AZACITIDINE
     Dosage: UNK
     Route: 048
     Dates: start: 20240408

REACTIONS (6)
  - Sepsis [Unknown]
  - Cellulitis [Unknown]
  - Pneumonia escherichia [Unknown]
  - Escherichia sepsis [Unknown]
  - Off label use [Unknown]
  - Product use issue [Unknown]

NARRATIVE: CASE EVENT DATE: 20231012
